FAERS Safety Report 25351853 (Version 1)
Quarter: 2025Q2

REPORT INFORMATION
  Report Type: Spontaneous
  Country: FR (occurrence: FR)
  Receive Date: 20250523
  Receipt Date: 20250523
  Transmission Date: 20250717
  Serious: Yes (Other)
  Sender: TEVA
  Company Number: None

PATIENT
  Age: 84 Year
  Sex: Female
  Weight: 60 kg

DRUGS (3)
  1. RAMIPRIL [Suspect]
     Active Substance: RAMIPRIL
     Indication: Hypertension
     Dosage: 1.25 MG IN THE MORNING
     Route: 048
     Dates: start: 20250314, end: 20250324
  2. ELIQUIS [Suspect]
     Active Substance: APIXABAN
     Indication: Atrial fibrillation
     Dosage: 1 MORNING AND EVENING
     Route: 048
     Dates: start: 20250306
  3. BISOPROLOL [Suspect]
     Active Substance: BISOPROLOL
     Indication: Cardiac failure
     Dosage: 3.75 MG IN THE MORNING AND 2.5 MG IN THE EVENING; BISOPROLOL (FUMARATE)
     Route: 048
     Dates: start: 20250306

REACTIONS (3)
  - Eyelid injury [Not Recovered/Not Resolved]
  - Rash scarlatiniform [Recovering/Resolving]
  - Pruritus [Recovering/Resolving]

NARRATIVE: CASE EVENT DATE: 20250320
